FAERS Safety Report 12321804 (Version 1)
Quarter: 2016Q2

REPORT INFORMATION
  Report Type: Spontaneous
  Country: US (occurrence: None)
  Receive Date: 20160429
  Receipt Date: 20160429
  Transmission Date: 20160815
  Serious: Yes (Other)
  Sender: FDA-Public Use
  Company Number: None

PATIENT
  Age: 68 Year
  Sex: Female
  Weight: 65.77 kg

DRUGS (15)
  1. PROVASTATIN [Concomitant]
  2. MULTI VITAMINS [Concomitant]
  3. VITAMIN D3 [Concomitant]
     Active Substance: CHOLECALCIFEROL
  4. LEVOFLOXACIN 500 MG TABLET ZYDUS PHARMACEUTICALS [Suspect]
     Active Substance: LEVOFLOXACIN
     Indication: BRONCHITIS
     Dosage: 1 PILL PER DAY @ SAME TIME, MOUTH
     Route: 048
     Dates: start: 20160310, end: 20160316
  5. OXCON EPINE [Concomitant]
  6. CELEBREX [Concomitant]
     Active Substance: CELECOXIB
  7. CALCIUM [Concomitant]
     Active Substance: CALCIUM
  8. BACLOFEN. [Concomitant]
     Active Substance: BACLOFEN
  9. VITAMIN E [Concomitant]
     Active Substance: .ALPHA.-TOCOPHEROL
  10. EFFEXOR [Concomitant]
     Active Substance: VENLAFAXINE HYDROCHLORIDE
  11. FENOFIBRATE. [Concomitant]
     Active Substance: FENOFIBRATE
  12. VITAMIN B [Concomitant]
     Active Substance: VITAMIN B
  13. NEURONTIN [Concomitant]
     Active Substance: GABAPENTIN
  14. POTASSIUM [Concomitant]
     Active Substance: POTASSIUM
  15. L-LYSINE [Concomitant]
     Active Substance: LYSINE

REACTIONS (3)
  - Burning sensation [None]
  - Tendonitis [None]
  - Myalgia [None]

NARRATIVE: CASE EVENT DATE: 20160313
